FAERS Safety Report 9422818 (Version 1)
Quarter: 2013Q3

REPORT INFORMATION
  Report Type: Spontaneous
  Country: GB (occurrence: GB)
  Receive Date: 20130726
  Receipt Date: 20130726
  Transmission Date: 20140515
  Serious: Yes (Other)
  Sender: FDA-Public Use
  Company Number: PHFR2013GB004223

PATIENT
  Age: 55 Year
  Sex: Female

DRUGS (4)
  1. EVEROLIMUS [Suspect]
     Dosage: UNK
     Dates: start: 2013
  2. ERIBULIN [Concomitant]
  3. FASLODEX [Concomitant]
  4. CAPECITABINE [Concomitant]

REACTIONS (5)
  - Hepatic lesion [Unknown]
  - Rash [Recovered/Resolved]
  - Fatigue [Unknown]
  - Cough [Unknown]
  - Dyspnoea [Unknown]
